FAERS Safety Report 9168013 (Version 2)
Quarter: 2013Q1

REPORT INFORMATION
  Report Type: Spontaneous
  Country: GB (occurrence: None)
  Receive Date: 20130307
  Receipt Date: 20130325
  Transmission Date: 20140127
  Serious: Yes (Other)
  Sender: FDA-Public Use
  Company Number: 2013-00575

PATIENT
  Age: 62 Year
  Sex: Male

DRUGS (4)
  1. LISINOPRIL [Suspect]
     Indication: BLOOD PRESSURE INCREASED
     Dosage: (UNKNOWN 2.5 MG, DAILY), ORAL
     Route: 048
     Dates: start: 20130206, end: 20130209
  2. LANSOPRAZOLE [Concomitant]
  3. NAPROXEN [Concomitant]
  4. BENDROFLUMETHIAZIDE [Concomitant]

REACTIONS (13)
  - Swelling face [None]
  - Cough [None]
  - Inflammation [None]
  - Nausea [None]
  - Wheezing [None]
  - Asthenia [None]
  - Myalgia [None]
  - Hyperhidrosis [None]
  - Paraesthesia [None]
  - Poor quality sleep [None]
  - Arthralgia [None]
  - Paraesthesia [None]
  - Paraesthesia [None]
